FAERS Safety Report 6756574-9 (Version None)
Quarter: 2010Q2

REPORT INFORMATION
  Report Type: 
  Country: None (occurrence: None)
  Receive Date: 20100604
  Receipt Date: 20100308
  Transmission Date: 20101027
  Serious: No
  Sender: FDA-Public Use
  Company Number: A0848901A

PATIENT
  Sex: Male

DRUGS (2)
  1. LAMICTAL [Suspect]
     Indication: BIPOLAR DISORDER
     Route: 048
  2. RITALIN [Concomitant]

REACTIONS (1)
  - ALOPECIA [None]
